FAERS Safety Report 9867582 (Version 1)
Quarter: 2014Q1

REPORT INFORMATION
  Report Type: Spontaneous
  Country: US (occurrence: US)
  Receive Date: 20140204
  Receipt Date: 20140204
  Transmission Date: 20141002
  Serious: No
  Sender: FDA-Public Use
  Company Number: US-GALDERMA-US13002034

PATIENT
  Age: 33 Year
  Sex: Female

DRUGS (3)
  1. EPIDUO (ADAPALENE, BENZOYL PEROXIDE) GEL 0.1% / 2.5% [Suspect]
     Indication: ACNE
     Route: 061
     Dates: start: 20130620, end: 20130625
  2. DOXYCYCLINE HYCLATE [Suspect]
     Indication: ACNE
     Route: 048
     Dates: start: 20130620, end: 20130625
  3. FINACEA [Concomitant]
     Indication: ACNE
     Route: 061
     Dates: start: 2008

REACTIONS (5)
  - Scar [Not Recovered/Not Resolved]
  - Acne [Not Recovered/Not Resolved]
  - Erythema [Not Recovered/Not Resolved]
  - Skin burning sensation [Not Recovered/Not Resolved]
  - Pruritus [Not Recovered/Not Resolved]
